FAERS Safety Report 7647470-3 (Version None)
Quarter: 2011Q3

REPORT INFORMATION
  Report Type: 
  Country: None (occurrence: None)
  Receive Date: 20110801
  Receipt Date: 20110721
  Transmission Date: 20111222
  Serious: Yes (Congenital Anomaly)
  Sender: FDA-Public Use
  Company Number: US-GLAXOSMITHKLINE-A0685065A

PATIENT
  Sex: Male
  Weight: 3.2 kg

DRUGS (2)
  1. PAXIL [Suspect]
     Indication: ANXIETY
     Dosage: 20MG PER DAY
     Route: 064
     Dates: start: 20020701, end: 20060901
  2. PRENATAL VITAMINS [Concomitant]
     Route: 064

REACTIONS (5)
  - PULMONARY ARTERY STENOSIS CONGENITAL [None]
  - CARDIAC MURMUR [None]
  - ATRIAL SEPTAL DEFECT [None]
  - PULMONARY VALVE STENOSIS CONGENITAL [None]
  - MATERNAL EXPOSURE DURING PREGNANCY [None]
